FAERS Safety Report 7833131-4 (Version None)
Quarter: 2011Q4

REPORT INFORMATION
  Report Type: 
  Country: None (occurrence: None)
  Receive Date: 20111024
  Receipt Date: 20111021
  Transmission Date: 20120403
  Serious: Yes (Hospitalization, Other)
  Sender: FDA-Public Use
  Company Number: KR-JNJFOC-20111007245

PATIENT
  Age: 57 Year
  Sex: Female

DRUGS (9)
  1. RISPERDAL [Suspect]
     Indication: PSYCHOTIC DISORDER
     Route: 048
     Dates: start: 20090601
  2. INVEGA [Suspect]
     Indication: PSYCHOTIC DISORDER
     Route: 048
  3. LAMICTAL [Suspect]
     Indication: SCHIZOAFFECTIVE DISORDER
     Route: 065
  4. XANAX [Concomitant]
     Route: 065
  5. INVEGA [Suspect]
     Route: 048
  6. LAMICTAL [Suspect]
     Route: 065
     Dates: start: 20090801
  7. LAMICTAL [Suspect]
     Route: 065
     Dates: start: 20090801
  8. WELLBUTRIN [Concomitant]
     Route: 065
  9. LAMICTAL [Suspect]
     Indication: BIPOLAR DISORDER
     Route: 065

REACTIONS (3)
  - EXTRAPYRAMIDAL DISORDER [None]
  - AGITATION [None]
  - DEPRESSED MOOD [None]
